FAERS Safety Report 6994177-1 (Version None)
Quarter: 2010Q3

REPORT INFORMATION
  Report Type: 
  Country: None (occurrence: None)
  Receive Date: 20100917
  Receipt Date: 20070131
  Transmission Date: 20110219
  Serious: Yes (Other)
  Sender: FDA-Public Use
  Company Number: US-ASTRAZENECA-2006UW07701

PATIENT
  Age: 49 Year
  Sex: Female
  Weight: 132.9 kg

DRUGS (9)
  1. SEROQUEL [Suspect]
     Indication: DEPRESSION
     Route: 048
     Dates: start: 20030101, end: 20050101
  2. SEROQUEL [Suspect]
     Indication: AGITATION
     Route: 048
     Dates: start: 20030101, end: 20050101
  3. SEROQUEL [Suspect]
     Dosage: 25-100 MG
     Route: 048
     Dates: start: 20050110
  4. SEROQUEL [Suspect]
     Dosage: 25-100 MG
     Route: 048
     Dates: start: 20050110
  5. GEODON [Concomitant]
  6. LAMICTAL [Concomitant]
     Dosage: 100-200 MG
     Route: 048
     Dates: start: 20040720
  7. LEXAPRO [Concomitant]
     Route: 048
     Dates: start: 20040720
  8. AMBIEN [Concomitant]
     Indication: SLEEP DISORDER
     Route: 048
     Dates: start: 20040720
  9. SYNTHROID [Concomitant]
     Route: 048
     Dates: start: 20040720

REACTIONS (4)
  - DIABETES MELLITUS [None]
  - DIABETIC COMA [None]
  - PANCREATITIS [None]
  - RENAL DISORDER [None]
